FAERS Safety Report 14717952 (Version 3)
Quarter: 2021Q1

REPORT INFORMATION
  Report Type: Spontaneous
  Country: US (occurrence: US)
  Receive Date: 20180404
  Receipt Date: 20210224
  Transmission Date: 20210419
  Serious: No
  Sender: FDA-Public Use
  Company Number: US-SA-2018SA057003

PATIENT
  Age: 39 Year
  Sex: Female

DRUGS (2)
  1. DUPIXENT [Suspect]
     Active Substance: DUPILUMAB
     Indication: DERMATITIS ATOPIC
     Dosage: 300 MG,QOW
     Route: 058
     Dates: start: 20171213
  2. DUPIXENT [Suspect]
     Active Substance: DUPILUMAB
     Indication: DERMATITIS CONTACT

REACTIONS (13)
  - Eye pain [Unknown]
  - Discomfort [Unknown]
  - Dermatitis [Unknown]
  - Eye disorder [Unknown]
  - Dry eye [Unknown]
  - Skin exfoliation [Unknown]
  - Dry skin [Unknown]
  - Eye swelling [Unknown]
  - Eye irritation [Unknown]
  - Visual impairment [Unknown]
  - Ocular hyperaemia [Unknown]
  - Adhesion [Unknown]
  - Dermatitis contact [Unknown]
